FAERS Safety Report 5106625-2 (Version None)
Quarter: 2006Q3

REPORT INFORMATION
  Report Type: 
  Country: None (occurrence: None)
  Receive Date: 20060918
  Receipt Date: 20060906
  Transmission Date: 20061208
  Serious: Yes (Hospitalization)
  Sender: FDA-Public Use
  Company Number: 2006SE04788

PATIENT
  Age: 25532 Day
  Sex: Female

DRUGS (9)
  1. ARIMIDEX [Suspect]
     Indication: BREAST CANCER
     Route: 048
     Dates: start: 20060713
  2. SELOKEN [Concomitant]
  3. HERMOLEPSIN [Concomitant]
  4. TROMBYL [Concomitant]
  5. SIMVASTATIN [Concomitant]
  6. LYRICA [Concomitant]
  7. OMEPRAZOLE [Concomitant]
  8. LACTULOSE [Concomitant]
  9. OXYCONTIN [Concomitant]

REACTIONS (1)
  - PNEUMONIA [None]
